FAERS Safety Report 5750832-2 (Version None)
Quarter: 2008Q2

REPORT INFORMATION
  Report Type: 
  Country: None (occurrence: None)
  Receive Date: 20080528
  Receipt Date: 20080519
  Transmission Date: 20081010
  Serious: Yes (Disabling)
  Sender: FDA-Public Use
  Company Number: B0487007A

PATIENT
  Age: 60 Year
  Sex: Male

DRUGS (3)
  1. NIQUITIN CQ 2MG LOZENGE [Suspect]
     Indication: DRUG USE FOR UNKNOWN INDICATION
     Dosage: 12LOZ PER DAY
     Route: 062
  2. BISOPROLOL [Concomitant]
     Dosage: 1.25MG PER DAY
  3. ASPIRIN [Concomitant]
     Dosage: .75MG PER DAY

REACTIONS (1)
  - OPTIC ISCHAEMIC NEUROPATHY [None]
